FAERS Safety Report 23181008 (Version 1)
Quarter: 2023Q4

REPORT INFORMATION
  Report Type: Spontaneous
  Country: US (occurrence: None)
  Receive Date: 20231113
  Receipt Date: 20231113
  Transmission Date: 20240110
  Serious: Yes (Other)
  Sender: FDA-Public Use
  Company Number: None

PATIENT
  Age: 73 Year
  Sex: Female
  Weight: 92.7 kg

DRUGS (1)
  1. FERAHEME [Suspect]
     Active Substance: FERUMOXYTOL NON-STOICHIOMETRIC MAGNETITE
     Indication: Iron deficiency anaemia
     Dosage: OTHER FREQUENCY : WEEK 1 OF 2;?
     Route: 042
     Dates: start: 20231026, end: 20231026

REACTIONS (3)
  - Infusion related reaction [None]
  - Pain [None]
  - Headache [None]

NARRATIVE: CASE EVENT DATE: 20231026
